FAERS Safety Report 16499079 (Version 2)
Quarter: 2022Q4

REPORT INFORMATION
  Report Type: Report from Study
  Country: DE (occurrence: DE)
  Receive Date: 20190701
  Receipt Date: 20221214
  Transmission Date: 20230112
  Serious: Yes (Other)
  Sender: FDA-Public Use
  Company Number: DE-AMGEN-DEUNI2019102983

PATIENT
  Age: 62 Year
  Sex: Female
  Weight: 58 kg

DRUGS (14)
  1. PANITUMUMAB [Suspect]
     Active Substance: PANITUMUMAB
     Indication: Colorectal cancer metastatic
     Dosage: 354 MILLIGRAM
     Route: 042
     Dates: start: 20190107
  2. PANITUMUMAB [Suspect]
     Active Substance: PANITUMUMAB
     Dosage: 355 MILLIGRAM
     Route: 042
     Dates: start: 20190418
  3. LEUCOVORIN [Suspect]
     Active Substance: LEUCOVORIN
     Indication: Colorectal cancer metastatic
     Dosage: 647 MILLIGRAM
     Route: 065
     Dates: start: 20190107
  4. LEUCOVORIN [Suspect]
     Active Substance: LEUCOVORIN
     Dosage: 645 MILLIGRAM
     Route: 065
     Dates: start: 20190418
  5. FLUOROURACIL [Suspect]
     Active Substance: FLUOROURACIL
     Indication: Colorectal cancer metastatic
     Dosage: 3880 MILLIGRAM
     Route: 040
     Dates: start: 20190107
  6. FLUOROURACIL [Suspect]
     Active Substance: FLUOROURACIL
     Dosage: 647 MILLIGRAM
     Route: 042
     Dates: start: 20190107
  7. FLUOROURACIL [Suspect]
     Active Substance: FLUOROURACIL
     Dosage: 645 MILLIGRAM
     Route: 042
     Dates: start: 20190418
  8. IRINOTECAN [Suspect]
     Active Substance: IRINOTECAN
     Indication: Colorectal cancer metastatic
     Dosage: 233 MILLIGRAM
     Route: 065
     Dates: start: 20190107
  9. IRINOTECAN [Suspect]
     Active Substance: IRINOTECAN
     Dosage: 230 MILLIGRAM
     Route: 065
     Dates: start: 20190418
  10. RAMIPRIL [Concomitant]
     Active Substance: RAMIPRIL
     Indication: Hypertension
     Dosage: 25 MILLIGRAM, QD
     Route: 048
     Dates: start: 19990101
  11. BISOPROLOL [Concomitant]
     Active Substance: BISOPROLOL
     Indication: Hypertension
     Dosage: (1.25 MILLIGRAM/2.5 MILLIGRAM/ 3.75 MILLIGRAM) QD
     Route: 048
     Dates: start: 19990101
  12. METAMIZOLE [Concomitant]
     Active Substance: METAMIZOLE
     Indication: Pain
     Dosage: 500 MILLIGRAM, AS NECESSARY
     Route: 048
     Dates: start: 20190107
  13. ZOPICLONE [Concomitant]
     Active Substance: ZOPICLONE
     Indication: Pain
     Dosage: 7.5 MILLIGRAM, AS NECESSARY
     Route: 048
     Dates: start: 20190107
  14. FENTANYL [Concomitant]
     Active Substance: FENTANYL
     Indication: Pain
     Dosage: 25 MICROGRAM, AS NECESSARY
     Route: 048
     Dates: start: 20190114

REACTIONS (2)
  - Neutropenia [Recovered/Resolved]
  - Rash [Recovered/Resolved]

NARRATIVE: CASE EVENT DATE: 20190211
